FAERS Safety Report 24008070 (Version 2)
Quarter: 2024Q3

REPORT INFORMATION
  Report Type: Spontaneous
  Country: US (occurrence: US)
  Receive Date: 20240625
  Receipt Date: 20240702
  Transmission Date: 20241016
  Serious: No
  Sender: GLAXOSMITHKLINE
  Company Number: US-GSKCCFUS-Case-02035061_AE-112835

PATIENT
  Sex: Female

DRUGS (1)
  1. ARNUITY ELLIPTA [Suspect]
     Active Substance: FLUTICASONE FUROATE
     Indication: Product used for unknown indication
     Dosage: 200 UG, QD

REACTIONS (3)
  - Tongue coated [Unknown]
  - Dizziness [Unknown]
  - Vomiting [Unknown]
